FAERS Safety Report 6609538-X (Version None)
Quarter: 2010Q1

REPORT INFORMATION
  Report Type: 
  Country: None (occurrence: None)
  Receive Date: 20100224
  Receipt Date: 20100209
  Transmission Date: 20100710
  Serious: Yes (Hospitalization)
  Sender: FDA-Public Use
  Company Number: DSJ-2010-02066

PATIENT
  Age: 64 Year
  Sex: Female
  Weight: 60 kg

DRUGS (4)
  1. OLMETEC (OLMESARTAN MEDOXOMIL) (TABLET) (OLMESARTAN MEDOXOMIL) [Suspect]
     Indication: HYPERTENSION
     Dosage: 20 MG, (20 MG, 1 IN 1 D), PER ORAL
     Route: 048
     Dates: start: 20070228
  2. CALBLOCK (AZELNIDIPINE) (TABLE) (AZELNIDIPINE) [Suspect]
     Indication: DRUG USE FOR UNKNOWN INDICATION
     Dosage: 8 MG (20 MG, 1 IN 1 D), PER ORAL
     Route: 048
     Dates: start: 20080416
  3. CRESTOR [Suspect]
     Dosage: 2.5 MG (2.5 MG, 1 IN 1 D) PER ORAL
     Route: 048
     Dates: start: 20070228
  4. EPADEL S (ETHYLICOSAPENATE) (ETHYL ICOSAPENTATE) [Concomitant]

REACTIONS (1)
  - SICK SINUS SYNDROME [None]
